FAERS Safety Report 11550301 (Version 2)
Quarter: 2015Q4

REPORT INFORMATION
  Report Type: Spontaneous
  Country: US (occurrence: US)
  Receive Date: 20150924
  Receipt Date: 20151026
  Transmission Date: 20160304
  Serious: Yes (Other)
  Sender: FDA-Public Use
  Company Number: US-ALLERGAN-1517796US

PATIENT
  Sex: Female

DRUGS (1)
  1. REFRESH P.M. [Suspect]
     Active Substance: MINERAL OIL\PETROLATUM
     Indication: DRY EYE
     Dosage: UNK, QHS
     Route: 047
     Dates: start: 2000, end: 2015

REACTIONS (2)
  - Vision blurred [Unknown]
  - Brain operation [Recovering/Resolving]
